FAERS Safety Report 10144809 (Version 1)
Quarter: 2014Q2

REPORT INFORMATION
  Report Type: Spontaneous
  Country: US (occurrence: US)
  Receive Date: 20140430
  Receipt Date: 20140430
  Transmission Date: 20141212
  Serious: No
  Sender: FDA-Public Use
  Company Number: US-SA-2014SA001651

PATIENT
  Age: 60 Year
  Sex: Female

DRUGS (2)
  1. LOVENOX [Suspect]
     Indication: SURGERY
     Route: 051
  2. COUMADIN [Concomitant]

REACTIONS (4)
  - Dizziness [Not Recovered/Not Resolved]
  - Vision blurred [Not Recovered/Not Resolved]
  - Hyperhidrosis [Not Recovered/Not Resolved]
  - Paraesthesia [Not Recovered/Not Resolved]
